FAERS Safety Report 23030242 (Version 4)
Quarter: 2024Q3

REPORT INFORMATION
  Report Type: Spontaneous
  Country: US (occurrence: US)
  Receive Date: 20231005
  Receipt Date: 20240909
  Transmission Date: 20241017
  Serious: No
  Sender: SANOFI AVENTIS
  Company Number: US-SA-SAC20230929001077

PATIENT
  Age: 47 Year
  Sex: Female

DRUGS (5)
  1. DUPIXENT [Suspect]
     Active Substance: DUPILUMAB
     Indication: Eczema
     Dosage: 600 MG, 1X
     Route: 058
     Dates: start: 20230924, end: 20230924
  2. DUPIXENT [Suspect]
     Active Substance: DUPILUMAB
     Dosage: 300 MG, QOW
     Route: 058
     Dates: start: 20231008
  3. DUPIXENT [Suspect]
     Active Substance: DUPILUMAB
     Dosage: 300 MG, Q10D
     Route: 058
     Dates: start: 2023
  4. DUPIXENT [Suspect]
     Active Substance: DUPILUMAB
     Dosage: 300 MG, QOW
     Route: 058
     Dates: end: 202403
  5. CLOBETASOL [Concomitant]
     Active Substance: CLOBETASOL
     Indication: Hyperkeratosis
     Dosage: UNK

REACTIONS (15)
  - Affective disorder [Unknown]
  - Skin fissures [Not Recovered/Not Resolved]
  - Emotional disorder [Unknown]
  - Anxiety [Unknown]
  - Exaggerated startle response [Unknown]
  - Skin exfoliation [Unknown]
  - Dry eye [Unknown]
  - Eczema [Recovering/Resolving]
  - Pruritus [Recovering/Resolving]
  - Skin fissures [Unknown]
  - Skin haemorrhage [Recovering/Resolving]
  - Condition aggravated [Recovering/Resolving]
  - Rash [Recovering/Resolving]
  - Therapeutic response decreased [Unknown]
  - Intentional product misuse [Unknown]

NARRATIVE: CASE EVENT DATE: 20230101
